FAERS Safety Report 10183100 (Version 1)
Quarter: 2014Q2

REPORT INFORMATION
  Report Type: Report from Study
  Country: US (occurrence: US)
  Receive Date: 20140520
  Receipt Date: 20140520
  Transmission Date: 20141212
  Serious: Yes (Other)
  Sender: FDA-Public Use
  Company Number: US-ROCHE-1403219

PATIENT
  Age: 53 Year
  Sex: Female

DRUGS (8)
  1. PEGASYS [Suspect]
     Indication: HEPATITIS C
     Route: 058
     Dates: start: 20130815, end: 201405
  2. PEGASYS [Suspect]
     Route: 058
     Dates: start: 201405
  3. COPEGUS [Suspect]
     Indication: HEPATITIS C
     Route: 048
     Dates: start: 20130815
  4. INCIVEK [Suspect]
     Indication: HEPATITIS C
     Route: 065
     Dates: start: 20130815, end: 201310
  5. CLOBETASOL [Concomitant]
     Route: 061
  6. FLONASE [Concomitant]
  7. METHADONE [Concomitant]
  8. AMBIEN [Concomitant]

REACTIONS (2)
  - Rash generalised [Recovered/Resolved]
  - Pancytopenia [Unknown]
